FAERS Safety Report 19376242 (Version 2)
Quarter: 2021Q4

REPORT INFORMATION
  Report Type: Report from Study
  Country: KR (occurrence: KR)
  Receive Date: 20210604
  Receipt Date: 20211121
  Transmission Date: 20220303
  Serious: Yes (Other)
  Sender: FDA-Public Use
  Company Number: KR-KYOWAKIRIN-2021AKK009232

PATIENT
  Age: 39 Year
  Sex: Female

DRUGS (38)
  1. FILGRASTIM [Suspect]
     Active Substance: FILGRASTIM
     Indication: Product used for unknown indication
     Dosage: UNK, QD (150)
     Route: 065
     Dates: start: 20180827, end: 20180827
  2. FILGRASTIM [Suspect]
     Active Substance: FILGRASTIM
     Dosage: UNK, QD (300)
     Route: 065
     Dates: start: 20180927, end: 20180927
  3. RAMUCIRUMAB [Concomitant]
     Active Substance: RAMUCIRUMAB
     Indication: Product used for unknown indication
     Dosage: UNK, QD
     Dates: start: 20180806, end: 20180806
  4. RAMUCIRUMAB [Concomitant]
     Active Substance: RAMUCIRUMAB
     Dosage: UNK, QD
     Dates: start: 20180820, end: 20180820
  5. RAMUCIRUMAB [Concomitant]
     Active Substance: RAMUCIRUMAB
     Dosage: UNK, QD
     Dates: start: 20180903, end: 20180903
  6. RAMUCIRUMAB [Concomitant]
     Active Substance: RAMUCIRUMAB
     Dosage: UNK, QD
     Dates: start: 20180918, end: 20180918
  7. RAMUCIRUMAB [Concomitant]
     Active Substance: RAMUCIRUMAB
     Dosage: UNK, QD
     Dates: start: 20181005, end: 20181005
  8. RAMUCIRUMAB [Concomitant]
     Active Substance: RAMUCIRUMAB
     Dosage: UNK, QD
     Dates: start: 20181019, end: 20181019
  9. RAMUCIRUMAB [Concomitant]
     Active Substance: RAMUCIRUMAB
     Dosage: UNK, QD
     Dates: start: 20181105, end: 20181105
  10. RAMUCIRUMAB [Concomitant]
     Active Substance: RAMUCIRUMAB
     Dosage: UNK, QD
     Dates: start: 20181120, end: 20181120
  11. CHLORPHENIRAMINE MALEATE [Concomitant]
     Active Substance: CHLORPHENIRAMINE MALEATE
     Indication: Product used for unknown indication
     Dosage: 4 MILLIGRAM, QD
     Dates: start: 20180806, end: 20180806
  12. CHLORPHENIRAMINE MALEATE [Concomitant]
     Active Substance: CHLORPHENIRAMINE MALEATE
     Dosage: 4 MILLIGRAM, QD
     Dates: start: 20180820, end: 20180820
  13. CHLORPHENIRAMINE MALEATE [Concomitant]
     Active Substance: CHLORPHENIRAMINE MALEATE
     Dosage: 4 MILLIGRAM, QD
     Dates: start: 20180903, end: 20180903
  14. CHLORPHENIRAMINE MALEATE [Concomitant]
     Active Substance: CHLORPHENIRAMINE MALEATE
     Dosage: 4 MILLIGRAM, QD
     Dates: start: 20180918, end: 20180918
  15. CHLORPHENIRAMINE MALEATE [Concomitant]
     Active Substance: CHLORPHENIRAMINE MALEATE
     Dosage: 4 MILLIGRAM, QD
     Dates: start: 20181005, end: 20181005
  16. CHLORPHENIRAMINE MALEATE [Concomitant]
     Active Substance: CHLORPHENIRAMINE MALEATE
     Dosage: 4 MILLIGRAM, QD
     Dates: start: 20181019, end: 20181019
  17. CHLORPHENIRAMINE MALEATE [Concomitant]
     Active Substance: CHLORPHENIRAMINE MALEATE
     Dosage: 4 MILLIGRAM, QD
     Dates: start: 20181105, end: 20181105
  18. CHLORPHENIRAMINE MALEATE [Concomitant]
     Active Substance: CHLORPHENIRAMINE MALEATE
     Dosage: 4 MILLIGRAM, QD
     Dates: start: 20181120, end: 20181120
  19. DEXAMETHASONE [Concomitant]
     Active Substance: DEXAMETHASONE
     Indication: Product used for unknown indication
     Dosage: 10 MILLIGRAM, QD
     Dates: start: 20180806, end: 20180806
  20. DEXAMETHASONE [Concomitant]
     Active Substance: DEXAMETHASONE
     Dosage: 10 MILLIGRAM, QD
     Dates: start: 20180820, end: 20180820
  21. DEXAMETHASONE [Concomitant]
     Active Substance: DEXAMETHASONE
     Dosage: 10 MILLIGRAM, QD
     Dates: start: 20180903, end: 20180903
  22. DEXAMETHASONE [Concomitant]
     Active Substance: DEXAMETHASONE
     Dosage: 10 MILLIGRAM, QD
     Dates: start: 20180918, end: 20180918
  23. DEXAMETHASONE [Concomitant]
     Active Substance: DEXAMETHASONE
     Dosage: 10 MILLIGRAM, QD
     Dates: start: 20181005, end: 20181005
  24. DEXAMETHASONE [Concomitant]
     Active Substance: DEXAMETHASONE
     Dosage: 10 MILLIGRAM, QD
     Dates: start: 20181019, end: 20181019
  25. DEXAMETHASONE [Concomitant]
     Active Substance: DEXAMETHASONE
     Dosage: 10 MILLIGRAM, QD
     Dates: start: 20181105, end: 20181105
  26. DEXAMETHASONE [Concomitant]
     Active Substance: DEXAMETHASONE
     Dosage: 10 MILLIGRAM, QD
     Dates: start: 20181120, end: 20181120
  27. PACLITAXEL [Concomitant]
     Active Substance: PACLITAXEL
     Indication: Product used for unknown indication
     Dosage: UNK, QD (64)
     Dates: start: 20180918, end: 20180918
  28. PACLITAXEL [Concomitant]
     Active Substance: PACLITAXEL
     Dosage: UNK, QD (64)
     Dates: start: 20181005, end: 20181005
  29. PACLITAXEL [Concomitant]
     Active Substance: PACLITAXEL
     Dosage: UNK, QD (64)
     Dates: start: 20181011, end: 20181011
  30. PACLITAXEL [Concomitant]
     Active Substance: PACLITAXEL
     Dosage: UNK, QD (64)
     Dates: start: 20181019, end: 20181019
  31. PACLITAXEL [Concomitant]
     Active Substance: PACLITAXEL
     Dosage: UNK, QD (64)
     Dates: start: 20181105, end: 20181105
  32. PACLITAXEL [Concomitant]
     Active Substance: PACLITAXEL
     Dosage: UNK, QD (64)
     Dates: start: 20181112, end: 20181112
  33. PACLITAXEL [Concomitant]
     Active Substance: PACLITAXEL
     Dosage: UNK, QD (64)
     Dates: start: 20181120, end: 20181120
  34. PACLITAXEL [Concomitant]
     Active Substance: PACLITAXEL
     Dosage: UNK, QD (80)
     Dates: start: 20180806, end: 20180806
  35. PACLITAXEL [Concomitant]
     Active Substance: PACLITAXEL
     Dosage: UNK, QD (80)
     Dates: start: 20180813, end: 20180813
  36. PACLITAXEL [Concomitant]
     Active Substance: PACLITAXEL
     Dosage: UNK, QD (80)
     Dates: start: 20180820, end: 20180820
  37. PACLITAXEL [Concomitant]
     Active Substance: PACLITAXEL
     Dosage: UNK, QD (80)
     Dates: start: 20180903, end: 20180903
  38. PACLITAXEL [Concomitant]
     Active Substance: PACLITAXEL
     Dosage: UNK, QD (80)
     Dates: start: 20180910, end: 20180910

REACTIONS (5)
  - Neutropenia [Recovered/Resolved]
  - Neutrophil count decreased [Recovered/Resolved]
  - Neutrophil count decreased [Recovered/Resolved]
  - Neutrophil count decreased [Recovered/Resolved]
  - Neutrophil count decreased [Recovered/Resolved]

NARRATIVE: CASE EVENT DATE: 20180827
